FAERS Safety Report 6470057-5 (Version None)
Quarter: 2009Q4

REPORT INFORMATION
  Report Type: 
  Country: None (occurrence: None)
  Receive Date: 20091203
  Receipt Date: 20081104
  Transmission Date: 20100525
  Serious: Yes (Life-Threatening)
  Sender: FDA-Public Use
  Company Number: JP-ELI_LILLY_AND_COMPANY-JP200711000298

PATIENT
  Age: 21 Year
  Sex: Female
  Weight: 50 kg

DRUGS (3)
  1. HUMALOG [Suspect]
     Indication: IMPAIRED INSULIN SECRETION
     Dosage: BASAL: 0.8U/HR, BORUS 12U-10U-12U
     Route: 058
     Dates: start: 20040401
  2. HUMALOG [Suspect]
     Dosage: BASAL: 0:00-7:00 1.0U/HR, 7:00-0:00 0.8U/HR, BORUS 12U-12U-12U
     Route: 058
  3. HUMALOG [Suspect]
     Dosage: BASAL: 0:00-7:00 1.0U/HR, 7:00-0:00 0.5U/HR, BORUS: 14U-12U-12U
     Route: 058

REACTIONS (2)
  - DRUG EXPOSURE DURING PREGNANCY [None]
  - ECLAMPSIA [None]
